FAERS Safety Report 20063260 (Version 1)
Quarter: 2021Q4

REPORT INFORMATION
  Report Type: Other
  Country: US (occurrence: None)
  Receive Date: 20211112
  Receipt Date: 20211112
  Transmission Date: 20220303
  Serious: Yes (Hospitalization)
  Sender: FDA-Public Use
  Company Number: US-ROCHE-2884916

PATIENT
  Sex: Male

DRUGS (1)
  1. CELLCEPT [Suspect]
     Active Substance: MYCOPHENOLATE MOFETIL\MYCOPHENOLATE MOFETIL HYDROCHLORIDE
     Indication: Liver transplant rejection
     Dosage: 2 CAPS
     Route: 065
     Dates: end: 20210827

REACTIONS (5)
  - Asthenia [Unknown]
  - Off label use [Unknown]
  - Ill-defined disorder [Unknown]
  - Hepatocellular carcinoma [Unknown]
  - Hyponatraemia [Unknown]
